FAERS Safety Report 4588427-9 (Version None)
Quarter: 2005Q1

REPORT INFORMATION
  Report Type: 
  Country: None (occurrence: None)
  Receive Date: 20050216
  Receipt Date: 20050128
  Transmission Date: 20050727
  Serious: Yes (Hospitalization)
  Sender: FDA-Public Use
  Company Number: USA050189371

PATIENT
  Age: 44 Year
  Sex: Female

DRUGS (2)
  1. HUMULIN N [Suspect]
  2. HUMULIN R [Suspect]

REACTIONS (4)
  - ABSCESS [None]
  - CELLULITIS [None]
  - DIABETES MELLITUS INADEQUATE CONTROL [None]
  - LATEX ALLERGY [None]
